FAERS Safety Report 5535696-4 (Version None)
Quarter: 2007Q4

REPORT INFORMATION
  Report Type: 
  Country: None (occurrence: None)
  Receive Date: 20071206
  Receipt Date: 20070303
  Transmission Date: 20080405
  Serious: Yes (Hospitalization)
  Sender: FDA-Public Use
  Company Number: US-AMGEN-STX213656

PATIENT
  Sex: Female

DRUGS (2)
  1. ENBREL [Suspect]
     Indication: RHEUMATOID ARTHRITIS
     Route: 058
     Dates: start: 20040830
  2. ENBREL [Suspect]
     Indication: SJOGREN'S SYNDROME

REACTIONS (4)
  - BACTERAEMIA [None]
  - INJECTION SITE REACTION [None]
  - PNEUMONIA [None]
  - RHEUMATOID ARTHRITIS [None]
